FAERS Safety Report 7661172-9 (Version None)
Quarter: 2011Q3

REPORT INFORMATION
  Report Type: 
  Country: None (occurrence: None)
  Receive Date: 20110805
  Receipt Date: 20101112
  Transmission Date: 20111222
  Serious: No
  Sender: FDA-Public Use
  Company Number: US-ABBOTT-10P-163-0685086-00

PATIENT
  Sex: Male
  Weight: 74.91 kg

DRUGS (3)
  1. PLAVIX [Concomitant]
     Indication: PRODUCT USED FOR UNKNOWN INDICATION
     Dates: start: 20090101
  2. CRESTOR [Concomitant]
     Indication: BLOOD CHOLESTEROL
     Dates: start: 20090101
  3. NIASPAN [Suspect]
     Indication: BLOOD CHOLESTEROL
     Dates: start: 20101108

REACTIONS (2)
  - FLUSHING [None]
  - HEART RATE INCREASED [None]
